FAERS Safety Report 15082999 (Version 1)
Quarter: 2018Q2

REPORT INFORMATION
  Report Type: Report from Study
  Country: CA (occurrence: CA)
  Receive Date: 20180628
  Receipt Date: 20180628
  Transmission Date: 20180711
  Serious: Yes (Other)
  Sender: FDA-Public Use
  Company Number: CA-JNJFOC-20180630413

PATIENT
  Age: 61 Year
  Sex: Female

DRUGS (2)
  1. CELEBREX [Suspect]
     Active Substance: CELECOXIB
     Indication: ADVERSE DRUG REACTION
     Route: 065
     Dates: start: 2018
  2. SIMPONI [Suspect]
     Active Substance: GOLIMUMAB
     Indication: ANKYLOSING SPONDYLITIS
     Route: 058
     Dates: start: 20140410, end: 20180516

REACTIONS (4)
  - Pneumonia aspiration [Recovering/Resolving]
  - Product use issue [Unknown]
  - Off label use [Unknown]
  - Escherichia infection [Recovering/Resolving]

NARRATIVE: CASE EVENT DATE: 20140410
